FAERS Safety Report 8602343-4 (Version None)
Quarter: 2012Q2

REPORT INFORMATION
  Report Type: 
  Country: None (occurrence: None)
  Receive Date: 20120423
  Receipt Date: 20081031
  Transmission Date: 20120825
  Serious: Yes (Disabling)
  Sender: FDA-Public Use
  Company Number: PHEH2008US07489

PATIENT
  Sex: Female

DRUGS (2)
  1. FEMARA [Suspect]
     Dates: start: 20080101, end: 20080101
  2. ZOMETA [Suspect]

REACTIONS (3)
  - GAIT DISTURBANCE [None]
  - PAIN [None]
  - BONE PAIN [None]
